FAERS Safety Report 9129764 (Version 1)
Quarter: 2013Q1

REPORT INFORMATION
  Report Type: Spontaneous
  Country: US (occurrence: US)
  Receive Date: 20130125
  Receipt Date: 20130125
  Transmission Date: 20140127
  Serious: No
  Sender: FDA-Public Use
  Company Number: US-B.I. PHARMACEUTICALS,INC./RIDGEFIELD-2013-BI-01853BP

PATIENT
  Age: 83 None
  Sex: Male

DRUGS (11)
  1. SPIRIVA [Suspect]
     Indication: CHRONIC OBSTRUCTIVE PULMONARY DISEASE
     Dosage: 18 MCG
     Route: 055
     Dates: start: 201201
  2. SPIRIVA [Suspect]
     Dosage: 54 MCG
     Route: 055
     Dates: start: 20130119, end: 20130119
  3. FUROSEMIDE [Concomitant]
     Route: 048
  4. FINASTERIDE [Concomitant]
     Indication: PROSTATOMEGALY
     Route: 048
  5. IPRATROPIUM [Concomitant]
     Route: 055
  6. METOPROLOL [Concomitant]
     Route: 048
  7. BUDESONIDE [Concomitant]
     Route: 055
  8. BROVANA [Concomitant]
     Route: 055
  9. TAMSULOSIN [Concomitant]
     Indication: PROSTATOMEGALY
     Route: 048
  10. DEXILANT [Concomitant]
     Route: 048
  11. ALBUTEROL [Concomitant]
     Route: 055

REACTIONS (3)
  - Product quality issue [Recovered/Resolved]
  - Incorrect dose administered [Recovered/Resolved]
  - Product quality issue [Recovered/Resolved]
